FAERS Safety Report 7599574-1 (Version None)
Quarter: 2011Q3

REPORT INFORMATION
  Report Type: 
  Country: None (occurrence: None)
  Receive Date: 20110711
  Receipt Date: 20110630
  Transmission Date: 20111222
  Serious: No
  Sender: FDA-Public Use
  Company Number: US-BIOGENIDEC-2011BI024323

PATIENT
  Age: 32 Year
  Sex: Female

DRUGS (1)
  1. AVONEX [Suspect]
     Indication: MULTIPLE SCLEROSIS
     Route: 030
     Dates: start: 20110301

REACTIONS (8)
  - HEARING IMPAIRED [None]
  - WEIGHT DECREASED [None]
  - BALANCE DISORDER [None]
  - DYSPHONIA [None]
  - DYSARTHRIA [None]
  - DECREASED APPETITE [None]
  - FALL [None]
  - OROPHARYNGEAL PAIN [None]
